FAERS Safety Report 16188596 (Version 9)
Quarter: 2019Q4

REPORT INFORMATION
  Report Type: Report from Study
  Country: CN (occurrence: CN)
  Receive Date: 20190412
  Receipt Date: 20191118
  Transmission Date: 20200122
  Serious: Yes (Hospitalization)
  Sender: FDA-Public Use
  Company Number: CN-ROCHE-2295547

PATIENT
  Age: 54 Year
  Sex: Female
  Weight: 40 kg

DRUGS (14)
  1. PACLITAXEL. [Suspect]
     Active Substance: PACLITAXEL
     Indication: OVARIAN CANCER
     Dosage: MOST RECENT DOSE OF PACLITAXEL (229 MG) PRIOR TO AE/SAE ONSET ON 07/MAR/2019
     Route: 042
     Dates: start: 20190122
  2. BEVACIZUMAB. [Suspect]
     Active Substance: BEVACIZUMAB
     Indication: OVARIAN CANCER
     Dosage: MOST RECENT DOSE OF BEVACIZUMAB (585 MG) PRIOR TO AE/SAE ONSET ON 07/MAR/2019
     Route: 042
     Dates: start: 20190212
  3. ONDANSETRON [Concomitant]
     Active Substance: ONDANSETRON
     Route: 065
     Dates: start: 20190307, end: 20190307
  4. OMEPRAZOLE. [Concomitant]
     Active Substance: OMEPRAZOLE
     Route: 065
     Dates: start: 20190307, end: 20190307
  5. LEVOFLOXACIN. [Concomitant]
     Active Substance: LEVOFLOXACIN
     Route: 065
     Dates: start: 20190327, end: 20190407
  6. PHLOROGLUCINOL [Concomitant]
     Active Substance: PHLOROGLUCINOL
     Indication: ABDOMINAL PAIN
     Route: 065
     Dates: start: 20190327, end: 20190407
  7. CARBOPLATIN. [Suspect]
     Active Substance: CARBOPLATIN
     Indication: OVARIAN CANCER
     Dosage: MOST RECENT DOSE OF CARBOPLATIN (682 MG) PRIOR TO AE/SAE ONSET ON 07/MAR/2019?AT A DOSE TO ACHIEVE A
     Route: 042
     Dates: start: 20190122
  8. RANITIDINE. [Concomitant]
     Active Substance: RANITIDINE
     Route: 065
     Dates: start: 20190327, end: 20190407
  9. BLINDED ATEZOLIZUMAB [Suspect]
     Active Substance: ATEZOLIZUMAB
     Indication: OVARIAN CANCER
     Dosage: 10:00:44 AM: MOST RECENT DOSE OF BLINDED ATEZOLIZUMAB PRIOR TO AE/SAE ONSET ON 07/MAR/2019
     Route: 042
     Dates: start: 20190122
  10. DEXAMETHASONE. [Concomitant]
     Active Substance: DEXAMETHASONE
     Route: 065
     Dates: start: 20190307, end: 20190307
  11. DIPHENHYDRAMINE. [Concomitant]
     Active Substance: DIPHENHYDRAMINE
     Route: 065
     Dates: start: 20190307, end: 20190307
  12. ORNIDAZOLE [Concomitant]
     Active Substance: ORNIDAZOLE
     Indication: INTESTINAL OBSTRUCTION
     Route: 065
     Dates: start: 20190329, end: 20190402
  13. FUROSEMIDE. [Concomitant]
     Active Substance: FUROSEMIDE
     Route: 065
     Dates: start: 20190307, end: 20190307
  14. PARACETAMOL [Concomitant]
     Active Substance: ACETAMINOPHEN
     Indication: NASOPHARYNGITIS
     Route: 065
     Dates: start: 20190123, end: 20190225

REACTIONS (1)
  - Ileus [Recovered/Resolved]

NARRATIVE: CASE EVENT DATE: 20190326
